FAERS Safety Report 13761494 (Version 3)
Quarter: 2017Q3

REPORT INFORMATION
  Report Type: Spontaneous
  Country: US (occurrence: US)
  Receive Date: 20170717
  Receipt Date: 20170901
  Transmission Date: 20171127
  Serious: Yes (Hospitalization, Other)
  Sender: FDA-Public Use
  Company Number: US-009507513-1707USA002790

PATIENT
  Age: 66 Year
  Sex: Female
  Weight: 72 kg

DRUGS (9)
  1. VIMPAT [Concomitant]
     Active Substance: LACOSAMIDE
  2. AVASTIN [Concomitant]
     Active Substance: BEVACIZUMAB
     Indication: GLIOBLASTOMA
     Dosage: 700 MG, EVERY 14 DAYS
     Route: 042
     Dates: start: 20170403, end: 20170408
  3. REGLAN [Concomitant]
     Active Substance: METOCLOPRAMIDE HYDROCHLORIDE
  4. PROTONIX [Concomitant]
     Active Substance: PANTOPRAZOLE SODIUM
  5. TEMODAR [Suspect]
     Active Substance: TEMOZOLOMIDE
     Dosage: 120 MG, 7 DAYS ON AND 7 DAYS OFF
     Route: 048
     Dates: start: 20170604, end: 20170624
  6. TEMODAR [Suspect]
     Active Substance: TEMOZOLOMIDE
     Dosage: 120 MG, DAILY DURING ^XET^
     Route: 048
     Dates: start: 20170408, end: 20170507
  7. TEMODAR [Suspect]
     Active Substance: TEMOZOLOMIDE
     Dosage: 120 MG, 7 DAYS ON AND 7 DAYS OFF
     Route: 048
     Dates: start: 20170804
  8. ZITHROMAX [Concomitant]
     Active Substance: AZITHROMYCIN DIHYDRATE
  9. TEMODAR [Suspect]
     Active Substance: TEMOZOLOMIDE
     Indication: GLIOBLASTOMA MULTIFORME
     Dosage: 120 MG, DAILY DURING ^XET^
     Route: 048
     Dates: start: 20170327

REACTIONS (9)
  - Pneumonia aspiration [Recovered/Resolved]
  - Thalamus haemorrhage [Recovered/Resolved]
  - Pneumonia [Recovered/Resolved]
  - Pyrexia [Recovered/Resolved]
  - Dysphagia [Unknown]
  - Unresponsive to stimuli [Unknown]
  - Urinary tract infection [Unknown]
  - Haemorrhage intracranial [Recovered/Resolved]
  - Mental status changes [Unknown]

NARRATIVE: CASE EVENT DATE: 20170406
